FAERS Safety Report 8403041-2 (Version None)
Quarter: 2012Q2

REPORT INFORMATION
  Report Type: 
  Country: None (occurrence: None)
  Receive Date: 20120601
  Receipt Date: 20120523
  Transmission Date: 20120825
  Serious: Yes (Hospitalization)
  Sender: FDA-Public Use
  Company Number: US-ELI_LILLY_AND_COMPANY-US201205008991

PATIENT
  Sex: Female

DRUGS (2)
  1. HUMULIN N [Suspect]
     Indication: DIABETES MELLITUS
     Route: 064
  2. HUMULIN N [Suspect]
     Route: 064

REACTIONS (4)
  - PREMATURE BABY [None]
  - DIARRHOEA NEONATAL [None]
  - VIRAL INFECTION [None]
  - FOETAL EXPOSURE DURING PREGNANCY [None]
